FAERS Safety Report 4385016-6 (Version None)
Quarter: 2004Q2

REPORT INFORMATION
  Report Type: 
  Country: None (occurrence: None)
  Receive Date: 20040625
  Receipt Date: 20040618
  Transmission Date: 20050107
  Serious: Yes (Other)
  Sender: FDA-Public Use
  Company Number: US-GLAXOSMITHKLINE-A0515232A

PATIENT
  Age: 55 Year
  Sex: Female

DRUGS (2)
  1. PAXIL CR [Suspect]
     Indication: ILL-DEFINED DISORDER
     Dosage: 25MG PER DAY
     Route: 048
  2. MULTIVITAMIN [Concomitant]

REACTIONS (3)
  - CONTUSION [None]
  - THROMBOSIS [None]
  - VEIN PAIN [None]
